FAERS Safety Report 12798183 (Version 1)
Quarter: 2016Q3

REPORT INFORMATION
  Report Type: Spontaneous
  Country: FR (occurrence: FR)
  Receive Date: 20160930
  Receipt Date: 20160930
  Transmission Date: 20161109
  Serious: Yes (Other)
  Sender: FDA-Public Use
  Company Number: FR-SA-2016SA179927

PATIENT
  Age: 63 Year
  Sex: Female

DRUGS (2)
  1. IMMUCYST [Suspect]
     Active Substance: BACILLUS CALMETTE-GUERIN SUBSTRAIN CONNAUGHT LIVE ANTIGEN
     Indication: BLADDER CANCER
     Dosage: 1/ 0.1429 DOSAGE FORM 1 DOSAGE FORM IN 1 WEEK.
     Route: 022
     Dates: start: 20160607, end: 20160607
  2. IMMUCYST [Suspect]
     Active Substance: BACILLUS CALMETTE-GUERIN SUBSTRAIN CONNAUGHT LIVE ANTIGEN
     Indication: BLADDER CANCER
     Dosage: 1/ 0.1429 DOSAGE FORM 1 DOSAGE FORM IN 1 WEEK.
     Route: 022
     Dates: start: 20160610, end: 20160610

REACTIONS (6)
  - Synovitis [Recovered/Resolved]
  - Arthralgia [Recovered/Resolved]
  - Disseminated Bacillus Calmette-Guerin infection [Recovering/Resolving]
  - Spinal pain [Unknown]
  - Pyrexia [Recovered/Resolved]
  - Polyarthritis [Recovered/Resolved]

NARRATIVE: CASE EVENT DATE: 20160610
